FAERS Safety Report 19869995 (Version 2)
Quarter: 2021Q4

REPORT INFORMATION
  Report Type: Report from Study
  Country: US (occurrence: US)
  Receive Date: 20210923
  Receipt Date: 20211122
  Transmission Date: 20220303
  Serious: No
  Sender: FDA-Public Use
  Company Number: US-LUNDBECK-DKLU3038595

PATIENT
  Age: 66 Year
  Sex: Female

DRUGS (1)
  1. VYEPTI [Suspect]
     Active Substance: EPTINEZUMAB-JJMR
     Indication: Migraine
     Route: 041
     Dates: start: 20210908

REACTIONS (4)
  - Infusion site bruising [Unknown]
  - Headache [Unknown]
  - Nasal dryness [Unknown]
  - Nasal mucosal blistering [Not Recovered/Not Resolved]

NARRATIVE: CASE EVENT DATE: 20210908
